FAERS Safety Report 6970710-0 (Version None)
Quarter: 2010Q3

REPORT INFORMATION
  Report Type: 
  Country: None (occurrence: None)
  Receive Date: 20100908
  Receipt Date: 20100827
  Transmission Date: 20110219
  Serious: Yes (Hospitalization)
  Sender: FDA-Public Use
  Company Number: DE-ROCHE-721875

PATIENT
  Sex: Male
  Weight: 75 kg

DRUGS (9)
  1. PEGINTERFERON ALFA-2A [Suspect]
     Indication: HEPATITIS C
     Route: 058
     Dates: start: 20100609
  2. RIBAVIRIN [Suspect]
     Indication: HEPATITIS C
     Route: 048
     Dates: start: 20100609
  3. CELLCEPT [Concomitant]
     Dosage: PAUSED
     Route: 048
     Dates: end: 20100609
  4. PROGRAF [Concomitant]
     Dosage: IN THE MORNING AND IN THE EVENING
     Route: 048
  5. URSO FALK [Concomitant]
     Dosage: IN THE MORNING AND IN THE EVENING
     Route: 048
  6. TAMSULOSIN HCL [Concomitant]
     Dosage: IN THE MORNING
     Route: 048
  7. OMEP [Concomitant]
     Dosage: IN THE MORNING
     Route: 048
  8. METOPROLOL SUCCINATE [Concomitant]
     Dosage: 1 DF IN THE MORNING, 0.5 DF IN THE EVENING
  9. JANUVIA [Concomitant]
     Dosage: IN THE MORNING

REACTIONS (1)
  - HAEMOLYSIS [None]
